FAERS Safety Report 9345719 (Version 1)
Quarter: 2013Q2

REPORT INFORMATION
  Report Type: Report from Study
  Country: CA (occurrence: CA)
  Receive Date: 20130613
  Receipt Date: 20130613
  Transmission Date: 20140414
  Serious: Yes (Other)
  Sender: FDA-Public Use
  Company Number: CA-JNJFOC-20130603645

PATIENT
  Age: 14 Year
  Sex: Female

DRUGS (1)
  1. REMICADE [Suspect]
     Indication: HIDRADENITIS
     Route: 042
     Dates: start: 201009

REACTIONS (2)
  - Abscess [Unknown]
  - Off label use [Unknown]
